FAERS Safety Report 21098172 (Version 8)
Quarter: 2023Q1

REPORT INFORMATION
  Report Type: Spontaneous
  Country: US (occurrence: US)
  Receive Date: 20220719
  Receipt Date: 20230317
  Transmission Date: 20230418
  Serious: No
  Sender: FDA-Public Use
  Company Number: US-GLAXOSMITHKLINE-US2022106647

PATIENT
  Age: 71 Year
  Sex: Female

DRUGS (8)
  1. ZEJULA [Suspect]
     Active Substance: NIRAPARIB
     Indication: Ovarian cancer
     Dosage: 200 MG, QD
     Dates: start: 20220705
  2. ZEJULA [Suspect]
     Active Substance: NIRAPARIB
     Dosage: 200 MG, QD
  3. ZEJULA [Suspect]
     Active Substance: NIRAPARIB
     Dosage: 100 MG
  4. ZEJULA [Suspect]
     Active Substance: NIRAPARIB
     Dosage: 200 MG, QD
     Route: 048
  5. ZEJULA [Suspect]
     Active Substance: NIRAPARIB
     Dosage: 200 MG, QD
     Route: 048
  6. ZEJULA [Suspect]
     Active Substance: NIRAPARIB
     Dosage: 200 MG, QD
     Route: 048
  7. ZEJULA [Suspect]
     Active Substance: NIRAPARIB
     Dosage: 200 MG, QD
  8. ALPRAZOLAM [Suspect]
     Active Substance: ALPRAZOLAM
     Indication: Anxiety
     Dosage: UNK

REACTIONS (24)
  - Haemoglobin decreased [Unknown]
  - Constipation [Not Recovered/Not Resolved]
  - Abdominal pain [Unknown]
  - Abdominal pain upper [Unknown]
  - Dyspepsia [Unknown]
  - Lactose intolerance [Unknown]
  - Insomnia [Unknown]
  - Headache [Recovered/Resolved]
  - Thirst [Unknown]
  - Weight decreased [Recovered/Resolved]
  - Full blood count abnormal [Unknown]
  - Peripheral swelling [Unknown]
  - Anxiety [Recovering/Resolving]
  - White blood cell count decreased [Unknown]
  - Red blood cell count decreased [Unknown]
  - Blood pressure abnormal [Recovering/Resolving]
  - Blood alkaline phosphatase increased [Unknown]
  - Fatigue [Unknown]
  - Osteoporosis [Unknown]
  - Back pain [Unknown]
  - Mammogram abnormal [Unknown]
  - Illness [Unknown]
  - Central venous catheter removal [Unknown]
  - Somnolence [Unknown]

NARRATIVE: CASE EVENT DATE: 20220701
